FAERS Safety Report 22110540 (Version 1)
Quarter: 2023Q1

REPORT INFORMATION
  Report Type: Spontaneous
  Country: CA (occurrence: CA)
  Receive Date: 20230317
  Receipt Date: 20230317
  Transmission Date: 20230417
  Serious: Yes (Death, Other)
  Sender: FDA-Public Use
  Company Number: CA-PFIZER INC-202200353551

PATIENT
  Age: 64 Year
  Sex: Male
  Weight: 51.247 kg

DRUGS (3)
  1. INLYTA [Suspect]
     Active Substance: AXITINIB
     Indication: Metastatic renal cell carcinoma
     Dosage: 5 MG, 2X/DAY
     Route: 048
     Dates: start: 20220310
  2. INLYTA [Suspect]
     Active Substance: AXITINIB
     Dosage: 10 MG, 2X/DAY
     Route: 048
  3. PEMBROLIZUMAB [Concomitant]
     Active Substance: PEMBROLIZUMAB
     Indication: Metastatic renal cell carcinoma
     Dosage: UNK

REACTIONS (5)
  - Death [Fatal]
  - Weight decreased [Unknown]
  - Fatigue [Unknown]
  - Anxiety [Unknown]
  - Off label use [Unknown]
